FAERS Safety Report 5558196-4 (Version None)
Quarter: 2007Q4

REPORT INFORMATION
  Report Type: 
  Country: None (occurrence: None)
  Receive Date: 20071214
  Receipt Date: 20071204
  Transmission Date: 20080405
  Serious: Yes (Other)
  Sender: FDA-Public Use
  Company Number: US-PFIZER INC-2007052418

PATIENT
  Sex: Male

DRUGS (1)
  1. CARDURA [Suspect]

REACTIONS (5)
  - BLOOD PRESSURE ABNORMAL [None]
  - DRUG INEFFECTIVE [None]
  - DYSURIA [None]
  - EXPIRED DRUG ADMINISTERED [None]
  - PROSTATIC OPERATION [None]
